FAERS Safety Report 9120079 (Version 1)
Quarter: 2013Q1

REPORT INFORMATION
  Report Type: Spontaneous
  Country: US (occurrence: US)
  Receive Date: 20130226
  Receipt Date: 20130226
  Transmission Date: 20140127
  Serious: Yes (Other)
  Sender: FDA-Public Use
  Company Number: US-009507513-1302USA009018

PATIENT
  Age: 5 Day
  Sex: Male
  Weight: .54 kg

DRUGS (1)
  1. INDOCIN I.V. [Suspect]
     Indication: PROPHYLAXIS
     Route: 042

REACTIONS (2)
  - Aortic thrombosis [Unknown]
  - Intestinal perforation [Unknown]
